FAERS Safety Report 7241971-8 (Version None)
Quarter: 2011Q1

REPORT INFORMATION
  Report Type: 
  Country: None (occurrence: None)
  Receive Date: 20110124
  Receipt Date: 20110110
  Transmission Date: 20110831
  Serious: Yes (Hospitalization, Other)
  Sender: FDA-Public Use
  Company Number: IT-MYLANLABS-2011S1000689

PATIENT
  Age: 66 Year
  Sex: Male

DRUGS (2)
  1. PRAMIPEXOLE [Suspect]
     Indication: PARKINSON'S DISEASE
     Dosage: INCREASED TO 3 MG/DAY FROM UNKNOWN STARTING DOSAGE
     Route: 065
  2. PRAMIPEXOLE [Suspect]
     Dosage: INCREASED TO 3 MG/DAY FROM UNKNOWN STARTING DOSAGE
     Route: 065

REACTIONS (2)
  - HYPERTENSIVE CRISIS [None]
  - EXCESSIVE EXERCISE [None]
